FAERS Safety Report 25855092 (Version 1)
Quarter: 2025Q3

REPORT INFORMATION
  Report Type: Report from Study
  Country: US (occurrence: US)
  Receive Date: 20250927
  Receipt Date: 20250927
  Transmission Date: 20251020
  Serious: Yes (Other)
  Sender: ABBVIE
  Company Number: US-ABBVIE-6473181

PATIENT
  Sex: Female

DRUGS (1)
  1. RINVOQ [Suspect]
     Active Substance: UPADACITINIB
     Indication: Dermatitis atopic
     Route: 048
     Dates: start: 202308

REACTIONS (5)
  - Knee arthroplasty [Unknown]
  - Wound dehiscence [Unknown]
  - Pain [Unknown]
  - Postoperative wound infection [Recovering/Resolving]
  - Incision site haemorrhage [Unknown]

NARRATIVE: CASE EVENT DATE: 20250922
